FAERS Safety Report 23786173 (Version 1)
Quarter: 2024Q2

REPORT INFORMATION
  Report Type: Other
  Country: US (occurrence: US)
  Receive Date: 20240426
  Receipt Date: 20240426
  Transmission Date: 20240716
  Serious: Yes (Death, Hospitalization, Other)
  Sender: FDA-Public Use
  Company Number: US-INTERCEPT-PM2024000655

PATIENT
  Sex: Female

DRUGS (22)
  1. OCALIVA [Suspect]
     Active Substance: OBETICHOLIC ACID
     Indication: Primary biliary cholangitis
     Dosage: 5 MILLIGRAM, QD
     Route: 048
     Dates: start: 20190603
  2. OCALIVA [Suspect]
     Active Substance: OBETICHOLIC ACID
     Dosage: 10 MILLIGRAM, QD
     Route: 048
     Dates: end: 20240326
  3. ACTIGALL [Concomitant]
     Active Substance: URSODIOL
     Dosage: 1000 MILLIGRAM, QD
     Route: 048
     Dates: start: 20231113
  4. CALCIUM [Concomitant]
     Active Substance: CALCIUM
  5. SYNTHROID [Concomitant]
     Active Substance: LEVOTHYROXINE SODIUM
     Dosage: 175 MICROGRAM, QD
     Route: 048
     Dates: start: 20230816
  6. ASPIRIN [Concomitant]
     Active Substance: ASPIRIN
  7. CLARITIN-D NOS [Concomitant]
     Active Substance: LORATADINE\PSEUDOEPHEDRINE SULFATE
  8. LISINOPRIL [Concomitant]
     Active Substance: LISINOPRIL
  9. FOSAMAX [Concomitant]
     Active Substance: ALENDRONATE SODIUM
  10. FLONASE ALLERGY RELIEF [Concomitant]
     Active Substance: FLUTICASONE PROPIONATE
  11. PROVENTIL HFA [Concomitant]
     Active Substance: ALBUTEROL SULFATE
     Indication: Wheezing
     Dosage: INHALE 2 PUFFS INTO THE LUNGS EVERY 6 HOURS AS NEEDED
     Dates: start: 20240112
  12. PROVENTIL HFA [Concomitant]
     Active Substance: ALBUTEROL SULFATE
     Indication: Dyspnoea
  13. CALCIUM CARBONATE\CHOLECALCIFEROL [Concomitant]
     Active Substance: CALCIUM CARBONATE\CHOLECALCIFEROL
     Dosage: TAKE 1 TABLET BY MOUTH DAILY
     Route: 048
  14. FERROUS SULFATE [Concomitant]
     Active Substance: FERROUS SULFATE
     Dosage: 325 MILLIGRAM, QD, TAKE 1 TABLET BY MOUTH DAILY (WITH BREAKFAST)
     Route: 048
     Dates: start: 20230816
  15. CLARITIN [Concomitant]
     Active Substance: LORATADINE
     Indication: Rhinitis allergic
     Dosage: 10 MILLIGRAM, PRN, TAKE 10 MG BY MOUTH AS NEEDED
     Route: 048
  16. MELATONIN [Concomitant]
     Active Substance: MELATONIN
     Dosage: 10 MILLIGRAM, PRN, TAKE 10 MG BY MOUTH NIGHTLY AS NEEDED
     Route: 048
     Dates: start: 20230215
  17. GLUCOPHAGE XR [Concomitant]
     Active Substance: METFORMIN HYDROCHLORIDE
     Dosage: 500 MILLIGRAM, TAKE 1 TABLET BY MOUTH DAILY WITH BREAKFAST
     Route: 048
     Dates: start: 20231229
  18. GLUCOPHAGE XR [Concomitant]
     Active Substance: METFORMIN HYDROCHLORIDE
     Dosage: 1000 MILLIGRAM
  19. BACTROBAN [Concomitant]
     Active Substance: MUPIROCIN CALCIUM
     Dosage: UNK
     Route: 061
     Dates: start: 20210824
  20. XIFAXAN [Concomitant]
     Active Substance: RIFAXIMIN
     Dosage: 550 MILLIGRAM, BID, TAKE 1,300 MG BY MOUTH DAILY. TAKES 2 TABS IN THE A.M
     Route: 048
     Dates: start: 20230105
  21. ATORVASTATIN CALCIUM [Concomitant]
     Active Substance: ATORVASTATIN CALCIUM
  22. FLUTICASONE PROPIONATE [Concomitant]
     Active Substance: FLUTICASONE PROPIONATE

REACTIONS (31)
  - Subdural haematoma [Fatal]
  - Cerebral mass effect [Fatal]
  - Hepatic failure [Fatal]
  - Ocular retrobulbar haemorrhage [Not Recovered/Not Resolved]
  - Cerebral haemorrhage [Not Recovered/Not Resolved]
  - Deafness bilateral [Not Recovered/Not Resolved]
  - COVID-19 [Not Recovered/Not Resolved]
  - Cataract [Not Recovered/Not Resolved]
  - Gastrointestinal disorder [Recovered/Resolved]
  - Sepsis [Not Recovered/Not Resolved]
  - Septic shock [Not Recovered/Not Resolved]
  - Acute kidney injury [Not Recovered/Not Resolved]
  - Subclavian artery stenosis [Not Recovered/Not Resolved]
  - Peripheral artery stenosis [Not Recovered/Not Resolved]
  - Shock [Not Recovered/Not Resolved]
  - Shock haemorrhagic [Not Recovered/Not Resolved]
  - Chronic kidney disease [Not Recovered/Not Resolved]
  - Hypothyroidism [Not Recovered/Not Resolved]
  - Hyperlipidaemia [Not Recovered/Not Resolved]
  - Liver disorder [Not Recovered/Not Resolved]
  - Muscle strain [Not Recovered/Not Resolved]
  - Large intestine polyp [Not Recovered/Not Resolved]
  - Asthma [Not Recovered/Not Resolved]
  - Hepatic steatosis [Not Recovered/Not Resolved]
  - Helicobacter gastritis [Recovered/Resolved]
  - Dysphagia [Not Recovered/Not Resolved]
  - Osteoporosis [Not Recovered/Not Resolved]
  - Agitation [Recovering/Resolving]
  - Pain [Recovering/Resolving]
  - Dyspnoea [Recovering/Resolving]
  - Constipation [Unknown]
